FAERS Safety Report 19361432 (Version 1)
Quarter: 2021Q2

REPORT INFORMATION
  Report Type: Spontaneous
  Country: SG (occurrence: SG)
  Receive Date: 20210601
  Receipt Date: 20210601
  Transmission Date: 20210717
  Serious: Yes (Other)
  Sender: FDA-Public Use
  Company Number: SG-ELITE LABORATORIES INC.-2021ELT00090

PATIENT
  Age: 53 Year
  Sex: Female

DRUGS (9)
  1. ATENOLOL. [Concomitant]
     Active Substance: ATENOLOL
     Dosage: 25 MG
     Route: 065
  2. ATENOLOL. [Concomitant]
     Active Substance: ATENOLOL
     Dosage: 50 MG
     Route: 065
     Dates: start: 202007
  3. MULTIVITAMIN [Concomitant]
     Active Substance: VITAMINS
     Route: 065
  4. PHENTERMINE. [Suspect]
     Active Substance: PHENTERMINE
     Indication: WEIGHT INCREASED
     Dosage: 15 MG, 1X/DAY, FOR 1 WEEK
     Route: 065
     Dates: start: 2020
  5. TOPIRAMATE. [Concomitant]
     Active Substance: TOPIRAMATE
     Dosage: 25 MG, 1X/DAY
     Route: 065
     Dates: start: 202010
  6. ATORVASTATIN [Concomitant]
     Active Substance: ATORVASTATIN
     Route: 065
  7. TOPIRAMATE. [Concomitant]
     Active Substance: TOPIRAMATE
     Dosage: 50 MG, 1X/DAY
     Route: 065
     Dates: start: 202007
  8. PHENTERMINE. [Suspect]
     Active Substance: PHENTERMINE
     Dosage: 30 MG, 1X/DAY
     Route: 065
     Dates: start: 2020
  9. TOPIRAMATE. [Concomitant]
     Active Substance: TOPIRAMATE
     Indication: WEIGHT INCREASED
     Dosage: 25 MG, 1X/DAY
     Route: 065
     Dates: start: 2020

REACTIONS (2)
  - Acute kidney injury [Recovered/Resolved]
  - Hypertension [Recovering/Resolving]
